FAERS Safety Report 5383163-3 (Version None)
Quarter: 2007Q3

REPORT INFORMATION
  Report Type: 
  Country: None (occurrence: None)
  Receive Date: 20070710
  Receipt Date: 20070628
  Transmission Date: 20080115
  Serious: Yes (Other)
  Sender: FDA-Public Use
  Company Number: HQWYE853329JUN07

PATIENT

DRUGS (2)
  1. EFFEXOR XR [Suspect]
     Dosage: 37.5 MG, FREQUENCY UNKNOWN
  2. CYMBALTA [Suspect]
     Dosage: UNKNOWN

REACTIONS (2)
  - ELECTROLYTE IMBALANCE [None]
  - HYPOKALAEMIA [None]
